FAERS Safety Report 8861340 (Version 1)
Quarter: 2012Q4

REPORT INFORMATION
  Report Type: Spontaneous
  Country: US (occurrence: None)
  Receive Date: 20121022
  Receipt Date: 20121022
  Transmission Date: 20130627
  Serious: Yes (Other)
  Sender: FDA-Public Use
  Company Number: 2012P1060889

PATIENT
  Age: 75 Year
  Sex: Male
  Weight: 95.26 kg

DRUGS (9)
  1. PREDNISONE [Suspect]
     Indication: MYELODYSPLASTIC SYNDROME
     Route: 048
     Dates: start: 201208, end: 201209
  2. PREDNISONE [Suspect]
     Indication: MYELODYSPLASTIC SYNDROME
     Route: 048
     Dates: start: 201209, end: 201210
  3. PREDNISONE [Suspect]
     Indication: MYELODYSPLASTIC SYNDROME
     Route: 048
     Dates: start: 201210
  4. OMEPRAZOLE [Suspect]
     Indication: ACID REFLUX (ESOPHAGEAL)
     Route: 048
     Dates: start: 201208
  5. SULFAMETHOXAZOLE AND TRIMETHOPRIM [Suspect]
     Indication: MYELODYSPLASTIC SYNDROME
     Dosage: 1 TABLET
     Route: 048
     Dates: start: 201208
  6. REVLIMID [Suspect]
     Indication: MYELODYSPLASTIC SYNDROME
     Route: 048
     Dates: start: 201208
  7. ATENOLOL [Concomitant]
  8. LISINOPRIL [Concomitant]
  9. HYDROCHLOROTHIAZIDE [Concomitant]

REACTIONS (7)
  - Oedema peripheral [None]
  - Dysphonia [None]
  - Blood count abnormal [None]
  - Ear pruritus [None]
  - Pruritus [None]
  - Pain of skin [None]
  - Erythema [None]
